FAERS Safety Report 8537178-4 (Version None)
Quarter: 2012Q3

REPORT INFORMATION
  Report Type: 
  Country: None (occurrence: None)
  Receive Date: 20120725
  Receipt Date: 20070226
  Transmission Date: 20120928
  Serious: Yes (Other)
  Sender: FDA-Public Use
  Company Number: CO-PFIZER INC-2012178911

PATIENT
  Age: 82 Year
  Sex: Male

DRUGS (7)
  1. METOPROLOL TARTRATE [Concomitant]
     Dosage: 100 MG, 3X/DAY
  2. LIPITOR [Suspect]
     Indication: DYSLIPIDAEMIA
     Dosage: 10 MG, 1X/DAY
  3. VERAPAMIL HYDROCHLORIDE [Concomitant]
     Dosage: 120 MG, 3X/DAY
  4. QUINAPRIL AND HYDROCHLOROTHIAZIDE [Suspect]
     Indication: HYPERTENSION
     Dosage: 20 MG/ 12.5 MG, 1X/DAY
  5. OMEPRAZOLE [Concomitant]
     Dosage: 20 MG, 1X/DAY
  6. VERAPAMIL HYDROCHLORIDE [Concomitant]
     Dosage: 120 MG, 2X/DAY
  7. METOPROLOL TARTRATE [Concomitant]
     Dosage: 50 MG, 2X/DAY

REACTIONS (3)
  - HYPERTENSION [None]
  - ACUTE MYOCARDIAL INFARCTION [None]
  - CHEST PAIN [None]
